FAERS Safety Report 15262934 (Version 1)
Quarter: 2018Q3

REPORT INFORMATION
  Report Type: Spontaneous
  Country: US (occurrence: US)
  Receive Date: 20180810
  Receipt Date: 20180810
  Transmission Date: 20181010
  Serious: Yes (Other)
  Sender: FDA-Public Use
  Company Number: US-ABBVIE-18K-163-2443389-00

PATIENT
  Age: 27 Year
  Sex: Male

DRUGS (2)
  1. VENCLEXTA [Suspect]
     Active Substance: VENETOCLAX
     Indication: ACUTE MYELOID LEUKAEMIA
     Route: 048
     Dates: start: 2018
  2. IPILIMUMAB [Concomitant]
     Active Substance: IPILIMUMAB
     Indication: ACUTE MYELOID LEUKAEMIA
     Route: 065
     Dates: start: 2018

REACTIONS (2)
  - Intentional product use issue [Unknown]
  - Metastases to meninges [Unknown]

NARRATIVE: CASE EVENT DATE: 2018
